FAERS Safety Report 19232715 (Version 2)
Quarter: 2021Q2

REPORT INFORMATION
  Report Type: Spontaneous
  Country: JP (occurrence: JP)
  Receive Date: 20210507
  Receipt Date: 20210601
  Transmission Date: 20210717
  Serious: Yes (Other)
  Sender: FDA-Public Use
  Company Number: JP-BAYER-2021-118497

PATIENT
  Age: 28 Year
  Sex: Female

DRUGS (6)
  1. CORTRIL [Interacting]
     Active Substance: HYDROCORTISONE
     Indication: SECONDARY ADRENOCORTICAL INSUFFICIENCY
     Dosage: DAILY DOSE 20 MG (3 MONTHS)
     Route: 048
  2. YAZ [Suspect]
     Active Substance: DROSPIRENONE\ETHINYL ESTRADIOL
     Indication: DYSMENORRHOEA
     Dosage: 1DF A DAY(DROSPIRENONE 3 MG  AND ETHINYL ESTRADIOL 0.02 MG)
     Route: 048
  3. METYRAPONE [Concomitant]
     Active Substance: METYRAPONE
     Indication: HYPERADRENOCORTICISM
     Dosage: DAILY DOSE 1500 MG
  4. CORTRIL [Interacting]
     Active Substance: HYDROCORTISONE
     Indication: SECONDARY ADRENOCORTICAL INSUFFICIENCY
     Dosage: DAILY DOSE  (3 MONTHS)
     Route: 048
  5. AMLODIPINE [Concomitant]
     Active Substance: AMLODIPINE BESYLATE
     Indication: HYPERTENSION
     Dosage: DAILY DOSE 5 MG
  6. CORTRIL [Interacting]
     Active Substance: HYDROCORTISONE
     Indication: SECONDARY ADRENOCORTICAL INSUFFICIENCY
     Dosage: DOSE INTERVAL 12 HOURS (MORNING AND EVENING)
     Route: 048

REACTIONS (6)
  - Condition aggravated [Recovered/Resolved]
  - Hyperadrenocorticism [Recovered/Resolved]
  - Potentiating drug interaction [Recovered/Resolved]
  - Secondary adrenocortical insufficiency [Recovered/Resolved]
  - Labelled drug-drug interaction medication error [Recovered/Resolved]
  - Blood corticotrophin decreased [Recovered/Resolved]

NARRATIVE: CASE EVENT DATE: 201712
